FAERS Safety Report 19351927 (Version 2)
Quarter: 2021Q2

REPORT INFORMATION
  Report Type: Report from Study
  Country: IL (occurrence: IL)
  Receive Date: 20210531
  Receipt Date: 20210608
  Transmission Date: 20210717
  Serious: Yes (Hospitalization)
  Sender: FDA-Public Use
  Company Number: IL-EISAI MEDICAL RESEARCH-EC-2021-093387

PATIENT
  Age: 79 Year
  Sex: Male
  Weight: 78.9 kg

DRUGS (9)
  1. LENVATINIB [Suspect]
     Active Substance: LENVATINIB
     Route: 048
     Dates: start: 20210519, end: 20210519
  2. MK?1308 [Suspect]
     Active Substance: QUAVONLIMAB
     Indication: METASTATIC MALIGNANT MELANOMA
     Dosage: 25 MG + 400 MG
     Route: 041
     Dates: start: 20210511, end: 20210511
  3. PROFEX [Concomitant]
     Dates: start: 201506
  4. COLCHICINE. [Concomitant]
     Active Substance: COLCHICINE
     Dates: start: 201601
  5. PEMBROLIZUMAB. [Suspect]
     Active Substance: PEMBROLIZUMAB
  6. LENVATINIB [Suspect]
     Active Substance: LENVATINIB
     Indication: METASTATIC MALIGNANT MELANOMA
     Route: 048
     Dates: start: 20210511, end: 20210511
  7. TEVAPIRIN [Concomitant]
     Dates: start: 201506
  8. ALLORIL [Concomitant]
     Active Substance: ALLOPURINOL
     Dates: start: 201601
  9. OMEPRADEX [Concomitant]
     Active Substance: OMEPRAZOLE
     Dates: start: 201703

REACTIONS (2)
  - Immune system disorder [Not Recovered/Not Resolved]
  - Overdose [Recovered/Resolved]

NARRATIVE: CASE EVENT DATE: 20210519
